FAERS Safety Report 7200610-2 (Version None)
Quarter: 2010Q4

REPORT INFORMATION
  Report Type: 
  Country: None (occurrence: None)
  Receive Date: 20101228
  Receipt Date: 20101220
  Transmission Date: 20110411
  Serious: Yes (Other)
  Sender: FDA-Public Use
  Company Number: BR-ABBOTT-10P-020-0692853-00

PATIENT
  Sex: Male
  Weight: 60 kg

DRUGS (3)
  1. HUMIRA [Suspect]
     Indication: CROHN'S DISEASE
     Dosage: LOADING DOSE:   160MG/80 MG  LOADING DOSE 160MG
     Route: 058
     Dates: start: 20090801
  2. HUMIRA [Suspect]
     Dosage: LOADING DOSE 80MG
     Route: 058
  3. HUMIRA [Suspect]
     Route: 058

REACTIONS (3)
  - ANAL FISTULA [None]
  - HAEMORRHOIDS [None]
  - PROCTITIS [None]
